FAERS Safety Report 7596689-9 (Version None)
Quarter: 2011Q3

REPORT INFORMATION
  Report Type: 
  Country: None (occurrence: None)
  Receive Date: 20110708
  Receipt Date: 20110627
  Transmission Date: 20111222
  Serious: Yes (Other)
  Sender: FDA-Public Use
  Company Number: US-ELI_LILLY_AND_COMPANY-US201004007731

PATIENT
  Age: 72 Year
  Sex: Female

DRUGS (3)
  1. FORTEO [Suspect]
     Dosage: 20 UG, QD
  2. FORTEO [Suspect]
     Dosage: 20 UG, DAILY (1/D)
     Route: 065
  3. FORTEO [Suspect]
     Indication: OSTEOPOROSIS
     Dosage: 20 UG, DAILY (1/D)
     Route: 065
     Dates: start: 20100424

REACTIONS (16)
  - HOT FLUSH [None]
  - DIZZINESS [None]
  - INFLAMMATION [None]
  - INJECTION SITE HAEMATOMA [None]
  - FATIGUE [None]
  - MUSCLE SPASMS [None]
  - PAIN [None]
  - LOSS OF CONSCIOUSNESS [None]
  - VITAMIN D DECREASED [None]
  - FALL [None]
  - FEELING ABNORMAL [None]
  - BLOOD PRESSURE INCREASED [None]
  - HEART RATE INCREASED [None]
  - HAIR TEXTURE ABNORMAL [None]
  - HEADACHE [None]
  - ARTHRALGIA [None]
